FAERS Safety Report 4386299-9 (Version None)
Quarter: 2004Q2

REPORT INFORMATION
  Report Type: 
  Country: None (occurrence: None)
  Receive Date: 20040623
  Receipt Date: 20040617
  Transmission Date: 20050107
  Serious: Yes (Other)
  Sender: FDA-Public Use
  Company Number: 2004-06-0703

PATIENT
  Age: 64 Year
  Sex: Female

DRUGS (1)
  1. QVAR AUTHOHALER  (BECLOMETHASONE DIPROPIONATE) [Suspect]
     Indication: ASTHMA
     Dosage: ORAL AER INH
     Route: 055

REACTIONS (2)
  - BLOOD CORTICOTROPHIN ABNORMAL [None]
  - HYPOPITUITARISM [None]
